FAERS Safety Report 23998945 (Version 1)
Quarter: 2024Q2

REPORT INFORMATION
  Report Type: Spontaneous
  Country: US (occurrence: US)
  Receive Date: 20240621
  Receipt Date: 20240621
  Transmission Date: 20240716
  Serious: Yes (Other)
  Sender: FDA-Public Use
  Company Number: US-STERISCIENCE B.V.-2024-ST-000018

PATIENT
  Age: 13 Month

DRUGS (6)
  1. MIDAZOLAM [Suspect]
     Active Substance: MIDAZOLAM
     Indication: Seizure
     Dosage: UNK, INFUSION
     Route: 042
  2. KETAMINE [Suspect]
     Active Substance: KETAMINE
     Indication: Seizure
     Dosage: UNK, INFUSION
     Route: 042
  3. LORAZEPAM [Suspect]
     Active Substance: LORAZEPAM
     Indication: Seizure
     Dosage: SEVERAL DOSES
     Route: 065
  4. FOSPHENYTOIN [Suspect]
     Active Substance: FOSPHENYTOIN
     Indication: Seizure
     Dosage: SEVERAL DOSES
     Route: 042
  5. PHENOBARBITAL [Suspect]
     Active Substance: PHENOBARBITAL
     Indication: Seizure
     Dosage: SEVERAL DOSES
     Route: 042
  6. PENTOBARBITAL [Suspect]
     Active Substance: PENTOBARBITAL
     Indication: Seizure
     Dosage: UNK, INFUSION
     Route: 042

REACTIONS (1)
  - Drug ineffective for unapproved indication [Unknown]
